FAERS Safety Report 5721084-4 (Version None)
Quarter: 2008Q2

REPORT INFORMATION
  Report Type: 
  Country: None (occurrence: None)
  Receive Date: 20080429
  Receipt Date: 20080429
  Transmission Date: 20081010
  Serious: Yes (Other)
  Sender: FDA-Public Use
  Company Number: A0725220A

PATIENT
  Age: 23 Year
  Sex: Male

DRUGS (1)
  1. NICODERM CQ [Suspect]
     Indication: SMOKING CESSATION THERAPY
     Dosage: 14MG UNKNOWN
     Route: 062
     Dates: start: 20080101

REACTIONS (14)
  - ALCOHOL INTERACTION [None]
  - AMNESIA [None]
  - CONVULSION [None]
  - DEAFNESS [None]
  - DISORIENTATION [None]
  - FALL [None]
  - FEELING COLD [None]
  - HEAD INJURY [None]
  - HYPERHIDROSIS [None]
  - LOSS OF CONSCIOUSNESS [None]
  - MALAISE [None]
  - NAUSEA [None]
  - TREMOR [None]
  - VISION BLURRED [None]
